FAERS Safety Report 18942497 (Version 2)
Quarter: 2021Q2

REPORT INFORMATION
  Report Type: Spontaneous
  Country: US (occurrence: US)
  Receive Date: 20210225
  Receipt Date: 20210408
  Transmission Date: 20210717
  Serious: Yes (Other)
  Sender: FDA-Public Use
  Company Number: US-ABBVIE-21K-163-3785196-00

PATIENT
  Age: 57 Year
  Sex: Female
  Weight: 61.29 kg

DRUGS (3)
  1. FISH OIL [Concomitant]
     Active Substance: FISH OIL
     Indication: PRODUCT USED FOR UNKNOWN INDICATION
  2. CLONAZEPAM. [Suspect]
     Active Substance: CLONAZEPAM
     Indication: MULTIPLE SCLEROSIS
     Route: 048
     Dates: start: 20201229, end: 20210111
  3. DEPAKOTE [Suspect]
     Active Substance: DIVALPROEX SODIUM
     Indication: PRODUCT USED FOR UNKNOWN INDICATION
     Route: 048

REACTIONS (5)
  - Headache [Recovered/Resolved]
  - Presyncope [Recovered/Resolved]
  - Vision blurred [Recovered/Resolved]
  - Chest pain [Recovering/Resolving]
  - Illness [Recovered/Resolved]

NARRATIVE: CASE EVENT DATE: 20201229
